FAERS Safety Report 5688490-8 (Version None)
Quarter: 2008Q1

REPORT INFORMATION
  Report Type: 
  Country: None (occurrence: None)
  Receive Date: 20080331
  Receipt Date: 20080320
  Transmission Date: 20080703
  Serious: Yes (Death, Life-Threatening, Hospitalization)
  Sender: FDA-Public Use
  Company Number: FR-JNJFOC-20080206372

PATIENT
  Age: 8 Decade
  Sex: Male
  Weight: 90 kg

DRUGS (3)
  1. REMICADE [Suspect]
     Indication: ACUTE FEBRILE NEUTROPHILIC DERMATOSIS
     Dosage: FIRST INFUSION
     Route: 042
  2. CORTANCYL [Suspect]
     Indication: DRUG USE FOR UNKNOWN INDICATION
  3. INSULIN [Concomitant]
     Indication: DIABETES MELLITUS

REACTIONS (7)
  - ACUTE RESPIRATORY DISTRESS SYNDROME [None]
  - ATRIAL FIBRILLATION [None]
  - ENTEROCOCCAL INFECTION [None]
  - KLEBSIELLA INFECTION [None]
  - PNEUMOTHORAX [None]
  - PYREXIA [None]
  - RENAL FAILURE [None]
